FAERS Safety Report 23776883 (Version 1)
Quarter: 2024Q2

REPORT INFORMATION
  Report Type: Spontaneous
  Country: US (occurrence: US)
  Receive Date: 20240424
  Receipt Date: 20240424
  Transmission Date: 20240716
  Serious: No
  Sender: FDA-Public Use
  Company Number: US-NOVAST LABORATORIES INC.-2024NOV000198

PATIENT

DRUGS (1)
  1. NEW DAY [Suspect]
     Active Substance: LEVONORGESTREL
     Indication: Post coital contraception
     Dosage: 1 TABLET(S), SINGLE
     Route: 048
     Dates: start: 20240126, end: 20240126

REACTIONS (2)
  - Adnexa uteri pain [Recovering/Resolving]
  - Vaginal haemorrhage [Not Recovered/Not Resolved]
